FAERS Safety Report 20845822 (Version 1)
Quarter: 2022Q2

REPORT INFORMATION
  Report Type: Spontaneous
  Country: US (occurrence: US)
  Receive Date: 20220518
  Receipt Date: 20220518
  Transmission Date: 20220720
  Serious: No
  Sender: FDA-Public Use
  Company Number: US-PFIZER INC-202200500190

PATIENT
  Age: 64 Year
  Sex: Female
  Weight: 88.45 kg

DRUGS (1)
  1. LIOTHYRONINE SODIUM [Suspect]
     Active Substance: LIOTHYRONINE SODIUM
     Indication: Thyroidectomy
     Dosage: 0.5 MG, 3X/DAY

REACTIONS (4)
  - Drug ineffective [Unknown]
  - Product size issue [Unknown]
  - Hypersensitivity [Unknown]
  - Urticaria [Unknown]
